FAERS Safety Report 20462156 (Version 4)
Quarter: 2022Q4

REPORT INFORMATION
  Report Type: Report from Study
  Country: DO (occurrence: DO)
  Receive Date: 20220211
  Receipt Date: 20221005
  Transmission Date: 20230112
  Serious: Yes (Hospitalization, Other)
  Sender: FDA-Public Use
  Company Number: DO-NOVARTISPH-NVSC2021DO253956

PATIENT
  Sex: Female

DRUGS (1)
  1. KISQALI [Suspect]
     Active Substance: RIBOCICLIB
     Indication: Breast cancer
     Dosage: 600 MG, QD
     Route: 048
     Dates: start: 20210913, end: 202207

REACTIONS (24)
  - Ill-defined disorder [Unknown]
  - Breast haemorrhage [Unknown]
  - Haemorrhoids [Unknown]
  - Breast neoplasm [Unknown]
  - Gastritis erosive [Unknown]
  - Breast cancer [Unknown]
  - Malignant neoplasm progression [Unknown]
  - Mobility decreased [Unknown]
  - Pain in extremity [Unknown]
  - Illness [Unknown]
  - Breast pain [Unknown]
  - Spinal deformity [Unknown]
  - Movement disorder [Unknown]
  - Irritability [Unknown]
  - Feeling abnormal [Unknown]
  - Pain [Unknown]
  - Functional gastrointestinal disorder [Unknown]
  - Obesity [Unknown]
  - Alopecia [Unknown]
  - Diarrhoea [Unknown]
  - Constipation [Unknown]
  - Asthenia [Unknown]
  - Drug ineffective [Unknown]
  - Fatigue [Unknown]

NARRATIVE: CASE EVENT DATE: 20220101
